FAERS Safety Report 5522193-5 (Version None)
Quarter: 2007Q4

REPORT INFORMATION
  Report Type: 
  Country: None (occurrence: None)
  Receive Date: 20071120
  Receipt Date: 20071114
  Transmission Date: 20080405
  Serious: Yes (Other)
  Sender: FDA-Public Use
  Company Number: B0332830A

PATIENT
  Age: 71 Year
  Sex: Male

DRUGS (8)
  1. ZINNAT INJECTABLE [Suspect]
     Indication: INFECTION PROPHYLAXIS
     Route: 042
     Dates: start: 20031201, end: 20031201
  2. PARACETAMOL [Suspect]
     Route: 065
     Dates: start: 20031201, end: 20031201
  3. CETIRIZINE HCL [Suspect]
     Route: 065
     Dates: start: 20031201, end: 20031201
  4. DOLOSAL [Suspect]
     Route: 065
     Dates: start: 20031201, end: 20031201
  5. ANESTHETIC [Suspect]
     Route: 065
     Dates: start: 20031201, end: 20031201
  6. TAHOR [Concomitant]
     Route: 048
     Dates: start: 20000101
  7. FLECAINIDE ACETATE [Concomitant]
     Indication: ARRHYTHMIA
     Route: 048
  8. VITAMINS [Concomitant]
     Route: 065
     Dates: start: 20031201, end: 20031201

REACTIONS (1)
  - DEAFNESS BILATERAL [None]
